FAERS Safety Report 6269900-4 (Version None)
Quarter: 2009Q3

REPORT INFORMATION
  Report Type: 
  Country: None (occurrence: None)
  Receive Date: 20090716
  Receipt Date: 20090706
  Transmission Date: 20100115
  Serious: Yes (Life-Threatening, Other)
  Sender: FDA-Public Use
  Company Number: HQWYE244127SEP06

PATIENT
  Sex: Female
  Weight: 61 kg

DRUGS (9)
  1. MYLOTARG [Suspect]
     Indication: ACUTE MYELOID LEUKAEMIA RECURRENT
     Route: 041
     Dates: start: 20060427, end: 20060427
  2. MYLOTARG [Suspect]
     Route: 041
     Dates: start: 20060511, end: 20060511
  3. NU-LOTAN [Concomitant]
     Route: 048
  4. POLYMYXIN-B-SULFATE [Concomitant]
     Indication: PROPHYLAXIS
     Route: 048
     Dates: start: 20060427, end: 20060529
  5. FLUCONAZOLE [Concomitant]
     Indication: PROPHYLAXIS
     Route: 048
     Dates: start: 20060427, end: 20060529
  6. FAMOTIDINE [Concomitant]
     Indication: PROPHYLAXIS
     Route: 048
     Dates: start: 20060427
  7. MUCOSTA [Concomitant]
     Indication: PROPHYLAXIS
     Route: 048
     Dates: start: 20060427
  8. AMLODIPINE [Concomitant]
     Route: 048
  9. BAKTAR [Concomitant]
     Indication: PROPHYLAXIS
     Route: 048
     Dates: start: 20060427, end: 20060529

REACTIONS (8)
  - ANAEMIA [None]
  - ASCITES [None]
  - FEBRILE NEUTROPENIA [None]
  - HEPATOMEGALY [None]
  - MALAISE [None]
  - NEUTROPHIL COUNT DECREASED [None]
  - PLATELET COUNT DECREASED [None]
  - WEIGHT INCREASED [None]
